FAERS Safety Report 9976023 (Version 1)
Quarter: 2014Q1

REPORT INFORMATION
  Report Type: Spontaneous
  Country: GB (occurrence: GB)
  Receive Date: 20140306
  Receipt Date: 20140306
  Transmission Date: 20141002
  Serious: Yes (Hospitalization)
  Sender: FDA-Public Use
  Company Number: GB-WATSON-2014-03610

PATIENT
  Age: 67 Year
  Sex: Male

DRUGS (2)
  1. CITALOPRAM (UNKNOWN) [Suspect]
     Indication: DEPRESSION
     Dosage: 20 MG, DAILY
     Route: 048
     Dates: start: 1996, end: 201312
  2. RYTHMODAN /00271801/ [Interacting]
     Indication: CHEST PAIN
     Dosage: 500 MG, DAILY
     Route: 065
     Dates: start: 2008, end: 2010

REACTIONS (3)
  - Urinary retention [Recovered/Resolved]
  - Chest pain [Unknown]
  - Drug interaction [Recovered/Resolved]
